FAERS Safety Report 8226944-0 (Version None)
Quarter: 2012Q1

REPORT INFORMATION
  Report Type: 
  Country: None (occurrence: None)
  Receive Date: 20120322
  Receipt Date: 20120317
  Transmission Date: 20120608
  Serious: Yes (Life-Threatening, Hospitalization)
  Sender: FDA-Public Use
  Company Number: US-BAYER-2011-031164

PATIENT
  Age: 50 Year
  Sex: Female
  Weight: 59.41 kg

DRUGS (12)
  1. YAZ [Suspect]
     Indication: CONTRACEPTION
     Dosage: UNK
     Route: 048
     Dates: start: 20070101, end: 20080401
  2. CYMBALTA [Concomitant]
     Dosage: 60 MG, UNK
  3. BUPROPION HYDROCHLORIDE [Concomitant]
     Dosage: 150 MG, UNK
  4. BUSPAR [Concomitant]
  5. ELIMITE [Concomitant]
     Indication: DERMATITIS
     Dosage: UNK
     Route: 061
     Dates: start: 20080313
  6. AMBIEN [Concomitant]
     Dosage: 10 MG, HS
  7. YAZ [Suspect]
     Indication: PREMENSTRUAL SYNDROME
  8. PREDNISONE TAB [Concomitant]
     Indication: DERMATITIS CONTACT
     Dosage: 20 MG, UNK
     Dates: start: 20080313, end: 20080318
  9. PREDNISONE TAB [Concomitant]
     Dosage: 20 MG, UNK
     Dates: start: 20080428, end: 20080503
  10. TRIAMCINOLONE [Concomitant]
     Indication: DERMATITIS
     Dosage: UNK UNK, BID
     Route: 061
     Dates: start: 20080313, end: 20080319
  11. ZYRTEC [Concomitant]
     Dosage: 10 MG, PRN
  12. BENADRYL [Concomitant]
     Dosage: 25 MG, UNK

REACTIONS (11)
  - HEPATIC NEOPLASM [None]
  - ANHEDONIA [None]
  - BILIARY ADENOMA [None]
  - INCISIONAL HERNIA [None]
  - HEPATIC CYST [None]
  - INTERNAL INJURY [None]
  - ASTHENIA [None]
  - FATIGUE [None]
  - PAIN [None]
  - ANXIETY [None]
  - GENERAL PHYSICAL HEALTH DETERIORATION [None]
